FAERS Safety Report 5718864-8 (Version None)
Quarter: 2008Q2

REPORT INFORMATION
  Report Type: 
  Country: None (occurrence: None)
  Receive Date: 20080423
  Receipt Date: 20080410
  Transmission Date: 20081010
  Serious: Yes (Other)
  Sender: FDA-Public Use
  Company Number: VNL_00759_2007

PATIENT
  Sex: Female

DRUGS (4)
  1. APO-GO (APO-GO PFS 5 MG/ML SOLUTION FOR INFUSION IN PRE-FILLED SYRINGE [Suspect]
     Indication: PARKINSON'S DISEASE
     Dosage: 4 MG PER HOUR FOR UNKNOWN FOR 12 HOURS DAILY SUBCUTANEOUS)
     Route: 058
     Dates: end: 20080103
  2. APO-GO (APO-GO PFS 5 MG/ML SOLUTION FOR INFUSION IN PRE-FILLED SYRINGE [Suspect]
     Indication: PARKINSON'S DISEASE
     Dosage: 4 MG PER HOUR FOR UNKNOWN FOR 12 HOURS DAILY SUBCUTANEOUS)
     Route: 058
     Dates: start: 20070501
  3. MADOPAR [Concomitant]
  4. COMTESS [Concomitant]

REACTIONS (8)
  - BLOOD BLISTER [None]
  - HALLUCINATION [None]
  - INFECTION [None]
  - INFUSION SITE REACTION [None]
  - NECROSIS [None]
  - PAIN IN EXTREMITY [None]
  - PANNICULITIS [None]
  - TREATMENT FAILURE [None]
